FAERS Safety Report 8859341 (Version 1)
Quarter: 2012Q4

REPORT INFORMATION
  Report Type: 
  Country: US (occurrence: US)
  Receive Date: 20121024
  Receipt Date: 20121024
  Transmission Date: 20130627
  Serious: No
  Sender: FDA-Public Use
  Company Number: US-ASTRAZENECA-2012SE13611

PATIENT
  Sex: Female

DRUGS (2)
  1. TOPROL XL [Suspect]
     Indication: HYPERTENSION
     Route: 048
  2. TOPROL XL [Suspect]
     Indication: HYPERTENSION
     Dosage: GENERIC, TOTAL DAILY DOSE: 25 MG
     Route: 048

REACTIONS (6)
  - Sinus disorder [Unknown]
  - Gastric disorder [Unknown]
  - Alopecia [Unknown]
  - Tinnitus [Unknown]
  - Abdominal pain [Unknown]
  - Visual impairment [Unknown]
